FAERS Safety Report 5006902-X (Version None)
Quarter: 2006Q2

REPORT INFORMATION
  Report Type: 
  Country: None (occurrence: None)
  Receive Date: 20060517
  Receipt Date: 20060504
  Transmission Date: 20061013
  Serious: Yes (Other)
  Sender: FDA-Public Use
  Company Number: 2006049022

PATIENT
  Age: 50 Year
  Sex: Male

DRUGS (3)
  1. VIAGRA [Suspect]
     Indication: ERECTILE DYSFUNCTION
     Dosage: 25 MG (25 MG, AS NECESSARY), ORAL
     Route: 048
     Dates: start: 20031101, end: 20060401
  2. ZYPREXA [Concomitant]
  3. LITHIUM CARBONATE [Concomitant]

REACTIONS (2)
  - ASTHENIA [None]
  - VISUAL DISTURBANCE [None]
